FAERS Safety Report 20220106 (Version 1)
Quarter: 2021Q4

REPORT INFORMATION
  Report Type: Spontaneous
  Country: US (occurrence: US)
  Receive Date: 20211222
  Receipt Date: 20211222
  Transmission Date: 20220304
  Serious: Yes (Other)
  Sender: FDA-Public Use
  Company Number: US-BEH-2021139768

PATIENT
  Age: 75 Year
  Sex: Female
  Weight: 58 kg

DRUGS (2)
  1. HIZENTRA [Suspect]
     Active Substance: HUMAN IMMUNOGLOBULIN G
     Indication: Chronic inflammatory demyelinating polyradiculoneuropathy
     Dosage: 12 GRAM, QW
     Route: 058
     Dates: start: 2016
  2. HIZENTRA [Suspect]
     Active Substance: HUMAN IMMUNOGLOBULIN G
     Dosage: 12 GRAM, QW
     Route: 058

REACTIONS (10)
  - Hypersensitivity [Unknown]
  - Recalled product administered [Unknown]
  - Injection site erythema [Unknown]
  - Recalled product administered [Unknown]
  - Injection site pruritus [Recovering/Resolving]
  - Recalled product administered [Recovering/Resolving]
  - Injection site swelling [Unknown]
  - Recalled product administered [Unknown]
  - Infusion related reaction [Unknown]
  - Recalled product administered [Unknown]

NARRATIVE: CASE EVENT DATE: 20210101
